FAERS Safety Report 23719104 (Version 2)
Quarter: 2024Q2

REPORT INFORMATION
  Report Type: Spontaneous
  Country: BR (occurrence: BR)
  Receive Date: 20240408
  Receipt Date: 20240418
  Transmission Date: 20240716
  Serious: No
  Sender: FDA-Public Use
  Company Number: BR-GUERBET / GUERBET PRODUTOS RADIOLOGICOS LTDA-BR-20240090

PATIENT
  Age: 36 Year

DRUGS (1)
  1. DOTAREM [Suspect]
     Active Substance: GADOTERATE MEGLUMINE
     Indication: Magnetic resonance imaging pelvic
     Route: 065
     Dates: start: 20230718, end: 20230718

REACTIONS (4)
  - Blood pressure increased [Unknown]
  - Cough [Unknown]
  - Erythema [Unknown]
  - Throat irritation [Unknown]

NARRATIVE: CASE EVENT DATE: 20230718
